FAERS Safety Report 6448017-X (Version None)
Quarter: 2009Q4

REPORT INFORMATION
  Report Type: 
  Country: None (occurrence: None)
  Receive Date: 20091120
  Receipt Date: 20091111
  Transmission Date: 20100525
  Serious: Yes (Other)
  Sender: FDA-Public Use
  Company Number: CH-ROCHE-668181

PATIENT
  Sex: Female

DRUGS (3)
  1. BONIVA [Suspect]
     Indication: OSTEOPOROSIS
     Route: 042
  2. NORVASC [Concomitant]
     Indication: HYPERTENSION
  3. INDERAL [Concomitant]

REACTIONS (1)
  - RETINAL ARTERY OCCLUSION [None]
